FAERS Safety Report 21676506 (Version 1)
Quarter: 2022Q4

REPORT INFORMATION
  Report Type: Spontaneous
  Country: AU (occurrence: AU)
  Receive Date: 20221202
  Receipt Date: 20221202
  Transmission Date: 20230113
  Serious: Yes (Other)
  Sender: FDA-Public Use
  Company Number: AU-GILEAD-2022-0602843

PATIENT
  Sex: Male

DRUGS (6)
  1. VOSEVI [Suspect]
     Active Substance: SOFOSBUVIR\VELPATASVIR\VOXILAPREVIR
     Indication: Hepatitis C
     Dosage: UNK
     Route: 065
     Dates: start: 202205, end: 202207
  2. FUROSEMIDE [Concomitant]
     Active Substance: FUROSEMIDE
  3. SPIRONOLACTONE [Concomitant]
     Active Substance: SPIRONOLACTONE
  4. RIFAXIMIN [Concomitant]
     Active Substance: RIFAXIMIN
  5. LACTULOSE [Concomitant]
     Active Substance: LACTULOSE
  6. VITAMINS [Concomitant]
     Active Substance: VITAMINS

REACTIONS (1)
  - Treatment failure [Unknown]
